FAERS Safety Report 5926543-7 (Version None)
Quarter: 2008Q4

REPORT INFORMATION
  Report Type: 
  Country: None (occurrence: None)
  Receive Date: 20081022
  Receipt Date: 20081016
  Transmission Date: 20090506
  Serious: Yes (Hospitalization, Other)
  Sender: FDA-Public Use
  Company Number: FR-BRISTOL-MYERS SQUIBB COMPANY-14154207

PATIENT
  Age: 69 Year
  Sex: Female

DRUGS (7)
  1. SPRYCEL [Suspect]
     Indication: ACUTE LYMPHOCYTIC LEUKAEMIA
     Dosage: 1 DOSAGE FORM = 100, UNITS NOT SPECIFIED
     Route: 048
     Dates: start: 20080319
  2. VINCRISTINE [Suspect]
     Indication: ACUTE LYMPHOCYTIC LEUKAEMIA
     Route: 041
     Dates: start: 20080319
  3. DEXAMETHASONE [Suspect]
     Indication: ACUTE LYMPHOCYTIC LEUKAEMIA
     Route: 041
     Dates: start: 20080319
  4. METHOTREXATE [Suspect]
     Indication: ACUTE LYMPHOCYTIC LEUKAEMIA
     Route: 037
  5. NEUPOGEN [Concomitant]
     Route: 048
     Dates: start: 20080402, end: 20080409
  6. MOPRAL [Concomitant]
     Route: 048
     Dates: start: 20080321
  7. PENTAMIDINE [Concomitant]
     Dates: start: 20080301

REACTIONS (3)
  - BONE MARROW FAILURE [None]
  - DEEP VEIN THROMBOSIS [None]
  - PULMONARY EMBOLISM [None]
